FAERS Safety Report 16858492 (Version 1)
Quarter: 2019Q3

REPORT INFORMATION
  Report Type: Spontaneous
  Country: US (occurrence: US)
  Receive Date: 20190926
  Receipt Date: 20190926
  Transmission Date: 20191005
  Serious: Yes (Hospitalization)
  Sender: FDA-Public Use
  Company Number: US-TEVA-2019-US-1112434

PATIENT
  Age: 82 Year
  Sex: Female

DRUGS (3)
  1. ATENOLOL TABLET [Suspect]
     Active Substance: ATENOLOL
     Indication: ATRIAL FIBRILLATION
     Route: 065
  2. CIPRO [Concomitant]
     Active Substance: CIPROFLOXACIN HYDROCHLORIDE
     Route: 065
  3. FLUORIQUINE [Concomitant]
     Route: 065

REACTIONS (1)
  - Colon cancer [Unknown]
